FAERS Safety Report 20814101 (Version 1)
Quarter: 2022Q2

REPORT INFORMATION
  Report Type: Spontaneous
  Country: US (occurrence: None)
  Receive Date: 20220510
  Receipt Date: 20220510
  Transmission Date: 20220721
  Serious: No
  Sender: FDA-Public Use
  Company Number: None

PATIENT
  Age: 28 Year
  Sex: Male
  Weight: 81 kg

DRUGS (3)
  1. DEXTROAMPHET SACCHARAT, AMPHET ASPARTATE, DEXTROAMPHET SULFATE AND AMP [Suspect]
     Active Substance: AMPHETAMINE ASPARTATE\AMPHETAMINE SULFATE\DEXTROAMPHETAMINE SACCHARATE\DEXTROAMPHETAMINE SULFATE
     Indication: Attention deficit hyperactivity disorder
     Dosage: FREQUENCY : TWICE A DAY;?
     Route: 048
     Dates: start: 20220509, end: 20220510
  2. ALPRAZOLAM [Concomitant]
     Active Substance: ALPRAZOLAM
  3. Mens multivitamin [Concomitant]

REACTIONS (5)
  - Drug ineffective [None]
  - Lethargy [None]
  - Disturbance in attention [None]
  - Product substitution issue [None]
  - Condition aggravated [None]

NARRATIVE: CASE EVENT DATE: 20220510
